FAERS Safety Report 23039286 (Version 1)
Quarter: 2023Q4

REPORT INFORMATION
  Report Type: Spontaneous
  Country: US (occurrence: US)
  Receive Date: 20231006
  Receipt Date: 20231006
  Transmission Date: 20240109
  Serious: Yes (Hospitalization)
  Sender: FDA-Public Use
  Company Number: US-Indivior Limited-INDV-136805-2022

PATIENT

DRUGS (1)
  1. SUBLOCADE [Suspect]
     Active Substance: BUPRENORPHINE
     Indication: Product used for unknown indication
     Dosage: UNK UNK, QMO
     Route: 065

REACTIONS (1)
  - Hepatitis [Not Recovered/Not Resolved]

NARRATIVE: CASE EVENT DATE: 20221101
